FAERS Safety Report 13612301 (Version 1)
Quarter: 2017Q2

REPORT INFORMATION
  Report Type: Spontaneous
  Country: US (occurrence: US)
  Receive Date: 20170605
  Receipt Date: 20170605
  Transmission Date: 20170830
  Serious: No
  Sender: FDA-Public Use
  Company Number: US-009507513-1705USA007281

PATIENT
  Sex: Female

DRUGS (1)
  1. NUVARING [Suspect]
     Active Substance: ETHINYL ESTRADIOL\ETONOGESTREL
     Indication: CONTRACEPTION
     Dosage: .12/.015 MG, UNK
     Route: 067
     Dates: start: 2007

REACTIONS (4)
  - Product contamination [Unknown]
  - Menometrorrhagia [Unknown]
  - Incorrect product storage [Unknown]
  - Adverse event [Not Recovered/Not Resolved]
